FAERS Safety Report 4758558-9 (Version None)
Quarter: 2005Q3

REPORT INFORMATION
  Report Type: 
  Country: None (occurrence: None)
  Receive Date: 20050829
  Receipt Date: 20050815
  Transmission Date: 20060218
  Serious: Yes (Other)
  Sender: FDA-Public Use
  Company Number: A-US2005-10431

PATIENT
  Age: 47 Year
  Sex: Female

DRUGS (4)
  1. TRACLEER [Suspect]
     Indication: PULMONARY HYPERTENSION
     Dosage: 125 + 62.5 MG, BID, ORAL SEE IMAGE
     Route: 048
     Dates: start: 20040527, end: 20040627
  2. TRACLEER [Suspect]
     Indication: PULMONARY HYPERTENSION
     Dosage: 125 + 62.5 MG, BID, ORAL SEE IMAGE
     Route: 048
     Dates: start: 20040628, end: 20050715
  3. SILDENAFIL(SILDENAFIL) [Suspect]
     Indication: PULMONARY HYPERTENSION
     Dosage: 100 MG, TID, ORAL
     Route: 048
     Dates: start: 20050402
  4. NORVASC [Concomitant]

REACTIONS (3)
  - ABDOMINAL PAIN UPPER [None]
  - ALANINE AMINOTRANSFERASE INCREASED [None]
  - NAUSEA [None]
